FAERS Safety Report 19788684 (Version 1)
Quarter: 2021Q3

REPORT INFORMATION
  Report Type: Spontaneous
  Country: PL (occurrence: PL)
  Receive Date: 20210904
  Receipt Date: 20210904
  Transmission Date: 20211014
  Serious: Yes (Other)
  Sender: FDA-Public Use
  Company Number: PL-CELLTRION INC.-2021PL011953

PATIENT

DRUGS (5)
  1. VEMURAFENIB. [Suspect]
     Active Substance: VEMURAFENIB
     Indication: HAIRY CELL LEUKAEMIA
     Dosage: 960 MG, BID
     Route: 065
     Dates: start: 201701
  2. RITUXIMAB. [Suspect]
     Active Substance: RITUXIMAB
     Indication: HAIRY CELL LEUKAEMIA
     Dosage: 8 DOSES OF 375 MG/M2 (ONE DOSE EVERY TWO WEEKS)
     Route: 042
     Dates: start: 201902
  3. VEMURAFENIB. [Suspect]
     Active Substance: VEMURAFENIB
     Dosage: 240 MG, BID (AFTER INITIAL TWO WEEKS)
     Route: 065
  4. PREDNISONE. [Concomitant]
     Active Substance: PREDNISONE
     Indication: PROPHYLAXIS
     Dosage: 10 MG
  5. VEMURAFENIB. [Suspect]
     Active Substance: VEMURAFENIB
     Dosage: 240 MG, BID FOR 16 WEEKS
     Route: 065
     Dates: start: 201902

REACTIONS (4)
  - Hairy cell leukaemia [Unknown]
  - Drug effective for unapproved indication [Unknown]
  - Disease progression [Unknown]
  - Off label use [Unknown]

NARRATIVE: CASE EVENT DATE: 202002
